FAERS Safety Report 8058055-1 (Version None)
Quarter: 2012Q1

REPORT INFORMATION
  Report Type: 
  Country: None (occurrence: None)
  Receive Date: 20120118
  Receipt Date: 20120118
  Transmission Date: 20120608
  Serious: Yes (Death)
  Sender: FDA-Public Use
  Company Number: None

PATIENT
  Sex: Female
  Weight: 69.5 kg

DRUGS (15)
  1. ARMODAFINIL [Suspect]
     Indication: FATIGUE
     Dosage: 150 MG DAILY P.O.
     Route: 048
     Dates: start: 20110907, end: 20111122
  2. COREG [Concomitant]
  3. AMLODIPINE [Concomitant]
  4. ASPIRIN [Concomitant]
  5. SENNA [Concomitant]
  6. DEPPRA [Concomitant]
  7. DECADRON [Concomitant]
  8. LASIX [Concomitant]
  9. PEPCID [Concomitant]
  10. ONDANSETRON HCL [Concomitant]
  11. CALCIUM [Concomitant]
  12. LEVEMIR [Concomitant]
  13. MULTI-VITAMINS [Concomitant]
  14. LEVOTHYROXINE SODIUM [Concomitant]
  15. NAPROXEN [Concomitant]

REACTIONS (6)
  - DELIRIUM [None]
  - URINARY TRACT INFECTION [None]
  - MENTAL STATUS CHANGES [None]
  - PULSE ABSENT [None]
  - PNEUMONIA [None]
  - RESPIRATORY ARREST [None]
